FAERS Safety Report 9324680 (Version 3)
Quarter: 2013Q3

REPORT INFORMATION
  Report Type: Report from Study
  Country: JP (occurrence: JP)
  Receive Date: 20130603
  Receipt Date: 20130712
  Transmission Date: 20140515
  Serious: Yes (Disabling)
  Sender: FDA-Public Use
  Company Number: JP-GLAXOSMITHKLINE-B0889908A

PATIENT
  Age: 6 Decade
  Sex: Male

DRUGS (2)
  1. VOTRIENT [Suspect]
     Indication: FIBROSARCOMA
     Dosage: 600MG PER DAY
     Route: 048
     Dates: start: 20130420, end: 20130510
  2. VOTRIENT [Suspect]
     Indication: FIBROSARCOMA
     Dosage: 400MG PER DAY
     Route: 048
     Dates: start: 20130518

REACTIONS (10)
  - Palmar-plantar erythrodysaesthesia syndrome [Recovered/Resolved]
  - Nausea [Recovered/Resolved]
  - Hypertension [Recovering/Resolving]
  - Diarrhoea [Recovering/Resolving]
  - Headache [Recovering/Resolving]
  - Diarrhoea [Recovered/Resolved]
  - Pain [Recovering/Resolving]
  - Fatigue [Recovered/Resolved]
  - Weight decreased [Unknown]
  - Hepatic function abnormal [Recovered/Resolved]
